FAERS Safety Report 10079860 (Version 1)
Quarter: 2014Q2

REPORT INFORMATION
  Report Type: Spontaneous
  Country: AU (occurrence: AU)
  Receive Date: 20140415
  Receipt Date: 20140415
  Transmission Date: 20141212
  Serious: Yes (Hospitalization)
  Sender: FDA-Public Use
  Company Number: AU-BANPHARM-20142521

PATIENT
  Age: 31 Year
  Sex: Male

DRUGS (1)
  1. IBUPROFEN UNKNOWN PRODUCT [Suspect]
     Indication: BACK PAIN
     Dosage: 20 DF, QD,
     Route: 048

REACTIONS (6)
  - Quadriparesis [Unknown]
  - Renal tubular acidosis [Unknown]
  - Hypokalaemia [Unknown]
  - Nephrocalcinosis [Unknown]
  - Intentional product misuse [Unknown]
  - Electrocardiogram U-wave abnormality [Unknown]
